FAERS Safety Report 4722799-7 (Version None)
Quarter: 2005Q3

REPORT INFORMATION
  Report Type: 
  Country: None (occurrence: None)
  Receive Date: 20050722
  Receipt Date: 20050707
  Transmission Date: 20060218
  Serious: Yes (Life-Threatening, Hospitalization)
  Sender: FDA-Public Use
  Company Number: 200512007JP

PATIENT
  Age: 64 Year
  Sex: Male
  Weight: 56.7 kg

DRUGS (11)
  1. AMARYL [Suspect]
     Indication: DIABETES MELLITUS NON-INSULIN-DEPENDENT
     Route: 048
     Dates: start: 20041215, end: 20050621
  2. GLUCOBAY [Concomitant]
     Indication: DIABETES MELLITUS
     Dosage: DOSE: 2TABLETS
     Dates: start: 20041215, end: 20050621
  3. LASIX [Concomitant]
     Indication: OEDEMA
     Dosage: DOSE: 1TABLET
     Dates: start: 20050511, end: 20050621
  4. FERRO-GRADUMET [Concomitant]
     Indication: ANAEMIA
     Dosage: DOSE: 1TABLET
     Dates: start: 20050511
  5. MAGLAX [Concomitant]
     Indication: CONSTIPATION
     Dosage: DOSE: 3TABLETS
     Dates: start: 20030226
  6. KAYEXALATE [Concomitant]
     Indication: HYPERKALAEMIA
     Dates: start: 20030609
  7. NU-LOTAN [Concomitant]
     Indication: HYPERTENSION
     Dosage: DOSE: 2TABLETS
     Dates: start: 20030226
  8. LANDEL [Concomitant]
     Indication: HYPERTENSION
     Dosage: DOSE: 2TABLETS
     Dates: start: 20031027
  9. CALBLOCK                                /JPN/ [Concomitant]
     Indication: HYPERTENSION
     Dosage: DOSE: 1TABLET
     Dates: start: 19980209
  10. ALLOPURINOL [Concomitant]
     Indication: HYPERLIPIDAEMIA
     Dosage: DOSE: 1TABLET
     Dates: start: 20030804
  11. PARIET [Concomitant]
     Indication: REFLUX OESOPHAGITIS
     Dosage: DOSE: 1TABLET
     Dates: start: 20041215

REACTIONS (3)
  - CONVULSION [None]
  - HYPOGLYCAEMIC COMA [None]
  - PNEUMONIA ASPIRATION [None]
